FAERS Safety Report 23664508 (Version 1)
Quarter: 2024Q1

REPORT INFORMATION
  Report Type: Spontaneous
  Country: US (occurrence: US)
  Receive Date: 20240322
  Receipt Date: 20240322
  Transmission Date: 20240410
  Serious: No
  Sender: FDA-Public Use
  Company Number: US-ASCENDIS PHARMA-2023US003527

PATIENT

DRUGS (5)
  1. SKYTROFA [Suspect]
     Active Substance: LONAPEGSOMATROPIN-TCGD
     Indication: Illness
     Dosage: 12.6 MILLIGRAM, WEEKLY
     Route: 058
  2. VITAMINS NOS [Concomitant]
     Active Substance: VITAMINS
     Indication: Product used for unknown indication
  3. VITAMIN D2 [Concomitant]
     Active Substance: ERGOCALCIFEROL
     Indication: Product used for unknown indication
  4. ALLEGRA D-12 HOUR [Concomitant]
     Active Substance: FEXOFENADINE HYDROCHLORIDE\PSEUDOEPHEDRINE HYDROCHLORIDE
     Indication: Product used for unknown indication
  5. PEPCID [Concomitant]
     Active Substance: FAMOTIDINE
     Indication: Product used for unknown indication

REACTIONS (1)
  - Renal disorder [Unknown]
